FAERS Safety Report 5485182-5 (Version None)
Quarter: 2007Q4

REPORT INFORMATION
  Report Type: 
  Country: None (occurrence: None)
  Receive Date: 20071010
  Receipt Date: 20071010
  Transmission Date: 20080405
  Serious: Yes (Hospitalization, Other)
  Sender: FDA-Public Use
  Company Number: None

PATIENT
  Age: 68 Year
  Sex: Female
  Weight: 79.3795 kg

DRUGS (2)
  1. METOCLOPRAMIDE [Suspect]
     Indication: NAUSEA
     Dosage: 10MG PER MEAL PO
     Route: 048
     Dates: start: 20061001, end: 20070927
  2. METOCLOPRAMIDE [Suspect]
     Indication: RETCHING
     Dosage: 10MG PER MEAL PO
     Route: 048
     Dates: start: 20061001, end: 20070927

REACTIONS (4)
  - DEPRESSED LEVEL OF CONSCIOUSNESS [None]
  - FATIGUE [None]
  - HYPERSOMNIA [None]
  - TARDIVE DYSKINESIA [None]
